FAERS Safety Report 8172403-3 (Version None)
Quarter: 2012Q1

REPORT INFORMATION
  Report Type: 
  Country: None (occurrence: None)
  Receive Date: 20120224
  Receipt Date: 20120224
  Transmission Date: 20120608
  Serious: Yes (Other)
  Sender: FDA-Public Use
  Company Number: None

PATIENT
  Sex: Male

DRUGS (4)
  1. TEMAZEPAM [Concomitant]
  2. LORAZEPAM [Suspect]
     Indication: SCHIZOPHRENIA, PARANOID TYPE
     Dosage: 2MG PO TWICE DAILY
     Route: 048
  3. LORAZEPAM [Suspect]
     Indication: ANXIETY
     Dosage: 2MG PO TWICE DAILY
     Route: 048
  4. ZYPREXA ZYDIS [Concomitant]

REACTIONS (2)
  - ADVERSE DRUG REACTION [None]
  - PRODUCT SUBSTITUTION ISSUE [None]
